FAERS Safety Report 8764386 (Version 2)
Quarter: 2012Q4

REPORT INFORMATION
  Report Type: Report from Study
  Country: CA (occurrence: CA)
  Receive Date: 20120831
  Receipt Date: 20120918
  Transmission Date: 20130627
  Serious: Yes (Other)
  Sender: FDA-Public Use
  Company Number: PHHY2012CA075162

PATIENT
  Sex: Female

DRUGS (4)
  1. CLOZARIL [Suspect]
     Indication: SCHIZOPHRENIA
     Dates: start: 20101108, end: 20120821
  2. CLOZARIL [Suspect]
     Dosage: 600 mg
     Route: 048
     Dates: end: 20120822
  3. SEROQUEL [Concomitant]
  4. CLONAZEPAM [Concomitant]

REACTIONS (1)
  - Poisoning [Recovered/Resolved]
